FAERS Safety Report 8186830-1 (Version None)
Quarter: 2012Q1

REPORT INFORMATION
  Report Type: 
  Country: None (occurrence: None)
  Receive Date: 20120306
  Receipt Date: 20120223
  Transmission Date: 20120608
  Serious: Yes (Death, Hospitalization)
  Sender: FDA-Public Use
  Company Number: JP-EISAI INC-E7389-01644-SPO-JP

PATIENT
  Sex: Female
  Weight: 71 kg

DRUGS (18)
  1. HALAVEN [Suspect]
     Indication: PLEURAL DISORDER
  2. HALAVEN [Suspect]
     Indication: METASTASES TO BONE
  3. LIPITOR [Concomitant]
     Dosage: UNKNOWN
     Route: 048
  4. BROTIZOLAM [Concomitant]
     Dosage: UNKNOWN
     Route: 048
  5. GRANISETRON [Concomitant]
     Dosage: UNKNOWN
     Route: 041
  6. FEMARA [Concomitant]
     Indication: PLEURAL DISORDER
  7. HALAVEN [Suspect]
     Indication: METASTASES TO LIVER
  8. HALAVEN [Suspect]
     Indication: METASTASES TO LUNG
  9. ZANTAC [Concomitant]
     Dosage: UNKNOWN
     Route: 041
  10. FEMARA [Concomitant]
     Indication: BREAST CANCER RECURRENT
     Dosage: UNKNOWN
     Route: 065
     Dates: start: 20080801, end: 20111023
  11. FEMARA [Concomitant]
     Indication: METASTASES TO LIVER
  12. FEMARA [Concomitant]
     Indication: METASTASES TO LUNG
  13. LOXONIN [Concomitant]
     Dosage: UNKNOWN
     Route: 048
  14. DEXAMETHASONE SODIUM PHOSPHATE [Concomitant]
     Dosage: UNKNOWN
     Route: 041
  15. HALAVEN [Suspect]
     Indication: BREAST CANCER RECURRENT
     Route: 041
     Dates: start: 20111004, end: 20111011
  16. FEMARA [Concomitant]
     Indication: METASTASES TO BONE
  17. LANSOPRAZOLE [Concomitant]
     Dosage: UNKNOWN
     Route: 048
  18. MUCOSTA [Concomitant]
     Dosage: UNKNOWN
     Route: 048

REACTIONS (3)
  - THROMBOCYTOPENIA [None]
  - HEPATIC FUNCTION ABNORMAL [None]
  - NEUTROPENIA [None]
